FAERS Safety Report 14022148 (Version 5)
Quarter: 2018Q2

REPORT INFORMATION
  Report Type: Spontaneous
  Country: US (occurrence: US)
  Receive Date: 20170928
  Receipt Date: 20180620
  Transmission Date: 20180711
  Serious: Yes (Death)
  Sender: FDA-Public Use
  Company Number: US-ACTELION-A-NJ2017-160135

PATIENT
  Age: 57 Year
  Sex: Female
  Weight: 61.68 kg

DRUGS (7)
  1. UPTRAVI [Suspect]
     Active Substance: SELEXIPAG
     Dosage: 1600 MCG, BID
     Route: 048
  2. UPTRAVI [Suspect]
     Active Substance: SELEXIPAG
     Indication: PULMONARY HYPERTENSION
     Dosage: 1400 MCG, BID
     Route: 048
  3. UPTRAVI [Suspect]
     Active Substance: SELEXIPAG
     Dosage: 400 MCG, BID
     Route: 048
  4. LETAIRIS [Concomitant]
     Active Substance: AMBRISENTAN
  5. SILDENAFIL CITRATE. [Concomitant]
     Active Substance: SILDENAFIL CITRATE
  6. WARFARIN [Concomitant]
     Active Substance: WARFARIN
  7. AMLODIPINE [Concomitant]
     Active Substance: AMLODIPINE BESYLATE

REACTIONS (10)
  - Decreased appetite [Unknown]
  - Muscle spasms [Unknown]
  - Gait disturbance [Unknown]
  - Death [Fatal]
  - Diarrhoea [Unknown]
  - Abdominal pain upper [Unknown]
  - Night sweats [Unknown]
  - Unevaluable event [Unknown]
  - Drug intolerance [Unknown]
  - Malaise [Unknown]
